FAERS Safety Report 5398189-3 (Version None)
Quarter: 2007Q3

REPORT INFORMATION
  Report Type: 
  Country: None (occurrence: None)
  Receive Date: 20070726
  Receipt Date: 20070714
  Transmission Date: 20080115
  Serious: Yes (Death, Hospitalization)
  Sender: FDA-Public Use
  Company Number: US-PFIZER INC-2007045271

PATIENT
  Age: 34 Year
  Sex: Female
  Weight: 119.3 kg

DRUGS (1)
  1. SUTENT [Suspect]
     Indication: UTERINE LEIOMYOSARCOMA
     Route: 048
     Dates: start: 20070512, end: 20070529

REACTIONS (6)
  - ANOREXIA [None]
  - DEATH [None]
  - DEHYDRATION [None]
  - DIARRHOEA [None]
  - NAUSEA [None]
  - VOMITING [None]
